FAERS Safety Report 5074390-3 (Version None)
Quarter: 2006Q3

REPORT INFORMATION
  Report Type: 
  Country: None (occurrence: None)
  Receive Date: 20060803
  Receipt Date: 20060801
  Transmission Date: 20061208
  Serious: Yes (Hospitalization)
  Sender: FDA-Public Use
  Company Number: HQWYE640301AUG06

PATIENT
  Sex: Male

DRUGS (1)
  1. CORDAREX (AMIODARONE, TABLET) [Suspect]
     Indication: DRUG USE FOR UNKNOWN INDICATION
     Dosage: ORAL
     Route: 048

REACTIONS (1)
  - TRANSITIONAL CELL CARCINOMA [None]
